FAERS Safety Report 9178677 (Version 1)
Quarter: 2012Q4

REPORT INFORMATION
  Report Type: 
  Country: US (occurrence: US)
  Receive Date: 20121029
  Receipt Date: 20121029
  Transmission Date: 20130627
  Serious: No
  Sender: FDA-Public Use
  Company Number: US-PFIZER INC-2012269556

PATIENT
  Age: 63 Year
  Sex: Female
  Weight: 97.1 kg

DRUGS (7)
  1. LYRICA [Suspect]
     Indication: DIABETIC PERIPHERAL NEUROPATHY
     Dosage: 50 mg, UNK
     Route: 048
     Dates: start: 20120810
  2. CYMBALTA [Concomitant]
     Dosage: 90 mg, UNK
  3. SIMVASTATIN/NIACIN [Concomitant]
     Dosage: UNK
  4. AMLODIPINE [Concomitant]
     Dosage: 2.5 mg, UNK
  5. SINGULAIR [Concomitant]
     Dosage: 10 mg, UNK
  6. LANTUS [Concomitant]
     Dosage: 100 IU, UNK
  7. HUMALOG [Concomitant]
     Dosage: 40 IU, UNK

REACTIONS (2)
  - Somnolence [Not Recovered/Not Resolved]
  - Fatigue [Not Recovered/Not Resolved]
